FAERS Safety Report 24903328 (Version 1)
Quarter: 2025Q1

REPORT INFORMATION
  Report Type: Spontaneous
  Country: US (occurrence: US)
  Receive Date: 20250130
  Receipt Date: 20250130
  Transmission Date: 20250408
  Serious: No
  Sender: BOEHRINGER INGELHEIM
  Company Number: US-Komodo Health-a23aa000005XHATAA4

PATIENT
  Age: 65 Year
  Sex: Female

DRUGS (1)
  1. OFEV [Suspect]
     Active Substance: NINTEDANIB
     Indication: Interstitial lung disease
     Dates: start: 2022

REACTIONS (3)
  - Diarrhoea [Not Recovered/Not Resolved]
  - Knee arthroplasty [Unknown]
  - Lung diffusion test decreased [Unknown]

NARRATIVE: CASE EVENT DATE: 20220101
